FAERS Safety Report 9206774 (Version 1)
Quarter: 2013Q2

REPORT INFORMATION
  Report Type: Spontaneous
  Country: DE (occurrence: CA)
  Receive Date: 20130403
  Receipt Date: 20130403
  Transmission Date: 20140414
  Serious: Yes (Other)
  Sender: FDA-Public Use
  Company Number: CA-FRI-1000043961

PATIENT
  Age: 8 Decade
  Sex: Male

DRUGS (1)
  1. MEMANTINE [Suspect]
     Route: 048

REACTIONS (1)
  - Pancreatitis [Recovered/Resolved]
